FAERS Safety Report 7358236-6 (Version None)
Quarter: 2011Q1

REPORT INFORMATION
  Report Type: 
  Country: None (occurrence: None)
  Receive Date: 20110317
  Receipt Date: 20110307
  Transmission Date: 20110831
  Serious: Yes (Hospitalization)
  Sender: FDA-Public Use
  Company Number: CA-ROCHE-763894

PATIENT
  Sex: Female
  Weight: 132 kg

DRUGS (12)
  1. LIPITOR [Concomitant]
  2. IRON [Concomitant]
  3. FLEXERIL [Concomitant]
  4. NAPROXEN [Concomitant]
  5. METHOTREXATE [Concomitant]
  6. PRILOSEC [Concomitant]
  7. CLONAZEPAM [Concomitant]
  8. EPIVAL [Concomitant]
  9. LAMICTAL [Concomitant]
  10. ABILIFY [Concomitant]
  11. TOCILIZUMAB [Suspect]
     Indication: RHEUMATOID ARTHRITIS
     Dosage: INFUSION
     Route: 042
     Dates: start: 20101118
  12. CIPRALEX [Concomitant]

REACTIONS (1)
  - SUICIDAL IDEATION [None]
